FAERS Safety Report 19164015 (Version 1)
Quarter: 2021Q2

REPORT INFORMATION
  Report Type: Spontaneous
  Country: FR (occurrence: FR)
  Receive Date: 20210421
  Receipt Date: 20210421
  Transmission Date: 20210717
  Serious: Yes (Hospitalization)
  Sender: FDA-Public Use
  Company Number: FR-PFIZER INC-2021398473

PATIENT
  Age: 15 Year
  Sex: Female

DRUGS (3)
  1. STRESAM [Suspect]
     Active Substance: ETIFOXINE
     Dosage: 2000 MG, SINGLE
     Route: 048
     Dates: start: 20210325
  2. EFFEXOR LP [Suspect]
     Active Substance: VENLAFAXINE HYDROCHLORIDE
     Dosage: 2250 MG, SINGLE
     Route: 048
     Dates: start: 20210325
  3. EFFIZINC [Suspect]
     Active Substance: ZINC GLUCONATE
     Dosage: 195 MG, SINGLE
     Route: 048
     Dates: start: 20210325

REACTIONS (4)
  - Sinus tachycardia [Recovered/Resolved]
  - Off label use [Unknown]
  - Abdominal pain [Recovered/Resolved]
  - Intentional overdose [Recovered/Resolved]

NARRATIVE: CASE EVENT DATE: 20210325
